FAERS Safety Report 5540621-6 (Version None)
Quarter: 2007Q4

REPORT INFORMATION
  Report Type: 
  Country: None (occurrence: None)
  Receive Date: 20071129
  Receipt Date: 20070712
  Transmission Date: 20080405
  Serious: Yes (Other)
  Sender: FDA-Public Use
  Company Number: US200704003035

PATIENT
  Sex: Female
  Weight: 144.2 kg

DRUGS (4)
  1. ZYPREXA [Suspect]
     Indication: SCHIZOAFFECTIVE DISORDER
     Dosage: 10 MG, ORAL
     Route: 048
     Dates: start: 19960101, end: 20050428
  2. DEPAKOTE [Concomitant]
  3. KLONOPIN [Concomitant]
  4. CLOZARIL [Concomitant]

REACTIONS (7)
  - BLOOD PRESSURE INCREASED [None]
  - CONVULSION [None]
  - HYPERSOMNIA [None]
  - LOSS OF CONSCIOUSNESS [None]
  - MENTAL DISORDER [None]
  - METABOLIC DISORDER [None]
  - WEIGHT INCREASED [None]
